FAERS Safety Report 25691078 (Version 1)
Quarter: 2025Q3

REPORT INFORMATION
  Report Type: Report from Study
  Country: US (occurrence: US)
  Receive Date: 20250818
  Receipt Date: 20250818
  Transmission Date: 20251020
  Serious: Yes (Other)
  Sender: ABBVIE
  Company Number: US-ABBVIE-6410153

PATIENT
  Age: 24 Year
  Sex: Female

DRUGS (1)
  1. RINVOQ [Suspect]
     Active Substance: UPADACITINIB
     Indication: Ankylosing spondylitis
     Dosage: STRENGTH:?15MG
     Route: 048
     Dates: start: 20230914

REACTIONS (11)
  - Stoma site infection [Unknown]
  - Nasopharyngitis [Recovering/Resolving]
  - Stoma site erythema [Unknown]
  - Stoma site discharge [Unknown]
  - Stoma site haemorrhage [Unknown]
  - Arthralgia [Unknown]
  - Discomfort [Unknown]
  - Pain [Unknown]
  - Neck pain [Unknown]
  - Joint swelling [Unknown]
  - Back pain [Unknown]

NARRATIVE: CASE EVENT DATE: 20250101
